FAERS Safety Report 16143780 (Version 1)
Quarter: 2019Q2

REPORT INFORMATION
  Report Type: Spontaneous
  Country: GB (occurrence: GB)
  Receive Date: 20190401
  Receipt Date: 20190401
  Transmission Date: 20190711
  Serious: Yes (Other)
  Sender: FDA-Public Use
  Company Number: GB-MYLANLABS-2019M1028644

PATIENT
  Age: 68 Year
  Sex: Male
  Weight: 82 kg

DRUGS (1)
  1. SILDENAFIL. [Suspect]
     Active Substance: SILDENAFIL
     Indication: ERECTILE DYSFUNCTION
     Dosage: 50 MILLIGRAM
     Route: 048
     Dates: start: 20160901

REACTIONS (4)
  - Gastrooesophageal reflux disease [Recovered/Resolved with Sequelae]
  - Blood urine present [Recovered/Resolved]
  - Dizziness postural [Recovered/Resolved]
  - Flushing [Recovered/Resolved]
